FAERS Safety Report 24899366 (Version 2)
Quarter: 2025Q1

REPORT INFORMATION
  Report Type: Other
  Country: JP (occurrence: JP)
  Receive Date: 20250129
  Receipt Date: 20250129
  Transmission Date: 20250409
  Serious: Yes (Life-Threatening)
  Sender: B BRAUN
  Company Number: JP-B.Braun Medical Inc.-2169962

PATIENT
  Age: 78 Year
  Sex: Male
  Weight: 62.9 kg

DRUGS (10)
  1. CEFAZOLIN SODIUM [Suspect]
     Active Substance: CEFAZOLIN SODIUM
     Indication: Sepsis
  2. METRONIDAZOLE [Suspect]
     Active Substance: METRONIDAZOLE
  3. ACYCLOVIR [Concomitant]
     Active Substance: ACYCLOVIR
  4. ROSUVASTATIN [Concomitant]
     Active Substance: ROSUVASTATIN
  5. PREDNISOLONE [Concomitant]
     Active Substance: PREDNISOLONE
  6. UNSPECIFIED INGREDIENT [Concomitant]
     Active Substance: UNSPECIFIED INGREDIENT
  7. MEROPENEM [Concomitant]
     Active Substance: MEROPENEM
  8. DORIPENEM [Concomitant]
     Active Substance: DORIPENEM
  9. VANCOMYCIN HYDROCHLORIDE [Suspect]
     Active Substance: VANCOMYCIN HYDROCHLORIDE
  10. BIAPENEM [Suspect]
     Active Substance: BIAPENEM

REACTIONS (1)
  - Drug ineffective [Unknown]
